FAERS Safety Report 9782939 (Version 1)
Quarter: 2013Q4

REPORT INFORMATION
  Report Type: Spontaneous
  Country: US (occurrence: US)
  Receive Date: 20131226
  Receipt Date: 20131226
  Transmission Date: 20140711
  Serious: Yes (Hospitalization)
  Sender: FDA-Public Use
  Company Number: US-JNJFOC-20131212382

PATIENT
  Age: 44 Year
  Sex: Male
  Weight: 95.26 kg

DRUGS (4)
  1. XARELTO [Suspect]
     Indication: PULMONARY EMBOLISM
     Route: 048
     Dates: start: 20131105, end: 20131121
  2. XARELTO [Suspect]
     Indication: PULMONARY EMBOLISM
     Route: 048
     Dates: start: 20130709, end: 20131028
  3. ASPIRIN [Concomitant]
     Route: 065
  4. DIGOXIN [Concomitant]
     Route: 065

REACTIONS (2)
  - Coronary artery disease [Unknown]
  - Pericardial haemorrhage [Recovered/Resolved]
